FAERS Safety Report 7864592-2 (Version None)
Quarter: 2011Q4

REPORT INFORMATION
  Report Type: 
  Country: None (occurrence: None)
  Receive Date: 20111028
  Receipt Date: 20110121
  Transmission Date: 20120403
  Serious: No
  Sender: FDA-Public Use
  Company Number: US-GLAXOSMITHKLINE-A0909590A

PATIENT
  Age: 52 Year
  Sex: Female
  Weight: 63.6 kg

DRUGS (2)
  1. SUMATRIPTAN SUCCINATE [Suspect]
     Indication: MIGRAINE
     Dosage: 20MG AS REQUIRED
     Route: 045
     Dates: start: 20100101
  2. NONE [Concomitant]

REACTIONS (3)
  - MIGRAINE [None]
  - DRUG INEFFECTIVE [None]
  - VOMITING [None]
